FAERS Safety Report 6363303-X (Version None)
Quarter: 2009Q3

REPORT INFORMATION
  Report Type: 
  Country: None (occurrence: None)
  Receive Date: 20090919
  Receipt Date: 20090624
  Transmission Date: 20100115
  Serious: No
  Sender: FDA-Public Use
  Company Number: US-ABBOTT-09P-163-0581814-00

PATIENT
  Sex: Female

DRUGS (4)
  1. HUMIRA [Suspect]
     Indication: PSORIATIC ARTHROPATHY
     Dates: start: 20081028
  2. METHOTREXATE [Concomitant]
     Indication: DRUG USE FOR UNKNOWN INDICATION
     Dates: start: 20090105
  3. UNKNOWN YELLOW PILL [Concomitant]
     Indication: PROSTATIC SPECIFIC ANTIGEN
     Dates: start: 20081028
  4. CLEOCIN [Concomitant]
     Indication: DRUG USE FOR UNKNOWN INDICATION
     Dates: start: 20090622

REACTIONS (8)
  - ABSCESS JAW [None]
  - FACIAL PAIN [None]
  - FEELING HOT [None]
  - HEADACHE [None]
  - NECK PAIN [None]
  - SWELLING FACE [None]
  - TOOTH ABSCESS [None]
  - TOOTH FRACTURE [None]
